FAERS Safety Report 12153954 (Version 2)
Quarter: 2016Q2

REPORT INFORMATION
  Report Type: Spontaneous
  Country: GB (occurrence: GB)
  Receive Date: 20160307
  Receipt Date: 20160512
  Transmission Date: 20160815
  Serious: Yes (Other)
  Sender: FDA-Public Use
  Company Number: GB-ACCORD-038390

PATIENT
  Age: 41 Year
  Sex: Male
  Weight: 119.7 kg

DRUGS (3)
  1. CLOZARIL [Suspect]
     Active Substance: CLOZAPINE
     Indication: SCHIZOPHRENIA
     Dosage: ALSO RECEIVED 300 MG, QD (100 IN MORNING AND 200 MG IN NIGHT) ON 9-JUN-2012
     Route: 048
     Dates: start: 20010701
  2. BISOPROLOL [Concomitant]
     Active Substance: BISOPROLOL
     Indication: PANIC ATTACK
     Route: 048
     Dates: start: 20120609
  3. SERTRALINE [Suspect]
     Active Substance: SERTRALINE HYDROCHLORIDE
     Indication: ANXIETY
     Route: 048
     Dates: start: 20121102

REACTIONS (11)
  - Conduction disorder [Unknown]
  - Oropharyngeal pain [Unknown]
  - Electrocardiogram QT prolonged [Unknown]
  - Erectile dysfunction [Unknown]
  - Schizophrenia [Unknown]
  - Polydipsia [Unknown]
  - Hyperhidrosis [Unknown]
  - Tachycardia [Unknown]
  - Anxiety [Unknown]
  - Blood glucose increased [Unknown]
  - Chest pain [Unknown]

NARRATIVE: CASE EVENT DATE: 20160118
